FAERS Safety Report 10234195 (Version 1)
Quarter: 2014Q2

REPORT INFORMATION
  Report Type: Spontaneous
  Country: DE (occurrence: DE)
  Receive Date: 20140612
  Receipt Date: 20140612
  Transmission Date: 20141212
  Serious: Yes (Hospitalization)
  Sender: FDA-Public Use
  Company Number: DE-MYLANLABS-2014S1012834

PATIENT
  Age: 59 Year
  Sex: Female

DRUGS (4)
  1. PAROXETIN [Suspect]
     Route: 048
     Dates: end: 20130622
  2. PAROXETIN [Suspect]
     Route: 048
     Dates: start: 20130623
  3. AMITRIPTYLIN [Suspect]
     Route: 048
     Dates: end: 20130618
  4. TRAMAL [Suspect]
     Route: 048
     Dates: start: 20130615, end: 20130618

REACTIONS (1)
  - Delirium [Recovered/Resolved]
